FAERS Safety Report 9276734 (Version 1)
Quarter: 2013Q2

REPORT INFORMATION
  Report Type: Spontaneous
  Country: CO (occurrence: CO)
  Receive Date: 20130507
  Receipt Date: 20130507
  Transmission Date: 20140414
  Serious: Yes (Death, Hospitalization, Other)
  Sender: FDA-Public Use
  Company Number: CO-ELI_LILLY_AND_COMPANY-CO201305000395

PATIENT
  Age: 55 Year
  Sex: Female

DRUGS (8)
  1. HUMALOG LISPRO [Suspect]
     Indication: TYPE 2 DIABETES MELLITUS
     Dosage: UNK, TID
     Route: 058
     Dates: start: 20130117
  2. ACETYLSALICYLIC ACID [Concomitant]
     Dosage: UNK, UNKNOWN
  3. LANTUS [Concomitant]
     Dosage: UNK, UNKNOWN
  4. PLAVIX [Concomitant]
     Dosage: UNK, UNKNOWN
  5. CARVEDILOL [Concomitant]
     Dosage: UNK, UNKNOWN
  6. LEVOTHYROXINE [Concomitant]
     Dosage: UNK, UNKNOWN
  7. ATORVASTATINA [Concomitant]
     Dosage: UNK, UNKNOWN
  8. CALCIUM [Concomitant]
     Dosage: UNK, UNKNOWN

REACTIONS (3)
  - Cardio-respiratory arrest [Fatal]
  - Respiratory arrest [Unknown]
  - Renal failure [Unknown]
